FAERS Safety Report 26077633 (Version 2)
Quarter: 2025Q4

REPORT INFORMATION
  Report Type: Spontaneous
  Country: US (occurrence: US)
  Receive Date: 20251122
  Receipt Date: 20251201
  Transmission Date: 20260118
  Serious: Yes (Other)
  Sender: AMGEN
  Company Number: US-AMGEN-USASP2025227887

PATIENT
  Age: 75 Year
  Sex: Female

DRUGS (11)
  1. EVENITY [Suspect]
     Active Substance: ROMOSOZUMAB-AQQG
     Indication: Osteoporosis postmenopausal
     Dosage: UNK UNK, QMO (TWO INJECTIONS)
     Route: 058
     Dates: start: 202501, end: 2025
  2. ALBUTEROL SULFATE [Concomitant]
     Active Substance: ALBUTEROL SULFATE
     Dosage: UNK
  3. DEXILANT [Concomitant]
     Active Substance: DEXLANSOPRAZOLE
     Indication: Gastrooesophageal reflux disease
     Dosage: 50 MILLIGRAM, QD/ ABOUT 8 YEARS ONE IN AM
  4. Acuvar [Concomitant]
     Dosage: UNK
  5. FAMOTIDINE [Concomitant]
     Active Substance: FAMOTIDINE
     Indication: Gastrooesophageal reflux disease
     Dosage: 40 MILLIGRAM, QHS/ AT BEDTIME 8 YEARS
  6. TYLENOL [Interacting]
     Active Substance: ACETAMINOPHEN
     Dosage: UNK, AS NECESSARY
     Route: 065
  7. ROSUVASTATIN CALCIUM [Concomitant]
     Active Substance: ROSUVASTATIN CALCIUM
     Dosage: 10 MILLIGRAM, QHS
  8. CLARITIN [Concomitant]
     Active Substance: LORATADINE
     Dosage: UNK
  9. GABAPENTIN [Concomitant]
     Active Substance: GABAPENTIN
     Indication: Restless legs syndrome
     Dosage: 300 MILLIGRAM, QHS/ 5 YEARS AT BEDTIME
  10. MONTELUKAST [Concomitant]
     Active Substance: MONTELUKAST
     Indication: Asthma
     Dosage: 10 MILLIGRAM, QD/ FOR 20 YEARS AT BEDTIME
  11. ASPIRIN [Concomitant]
     Active Substance: ASPIRIN
     Indication: Heart rate irregular
     Dosage: UNK UNK, QD

REACTIONS (3)
  - Polymyalgia rheumatica [Not Recovered/Not Resolved]
  - Drug intolerance [Unknown]
  - Migraine [Unknown]

NARRATIVE: CASE EVENT DATE: 20250101
